FAERS Safety Report 5167169-5 (Version None)
Quarter: 2006Q4

REPORT INFORMATION
  Report Type: 
  Country: None (occurrence: None)
  Receive Date: 20061130
  Receipt Date: 20061123
  Transmission Date: 20070319
  Serious: Yes (Other)
  Sender: FDA-Public Use
  Company Number: FRWYE643224NOV06

PATIENT
  Age: 70 Year
  Sex: Male

DRUGS (3)
  1. PIPERACILLIN AND TAZOBACTAM [Suspect]
     Indication: LUNG INFECTION PSEUDOMONAL
     Dosage: 12 G TOTAL DAILY
     Route: 042
     Dates: start: 20061110, end: 20061119
  2. CIPROFLOXACIN [Suspect]
     Indication: LUNG INFECTION PSEUDOMONAL
     Dates: start: 20061110, end: 20061119
  3. ORAL ANTICOAGULANT NOS [Concomitant]

REACTIONS (4)
  - BLOOD CREATINE INCREASED [None]
  - BLOOD UREA INCREASED [None]
  - NEPHRITIS INTERSTITIAL [None]
  - PYELOCALIECTASIS [None]
